FAERS Safety Report 5102902-X (Version None)
Quarter: 2006Q3

REPORT INFORMATION
  Report Type: 
  Country: None (occurrence: None)
  Receive Date: 20060907
  Receipt Date: 20060821
  Transmission Date: 20061208
  Serious: Yes (Life-Threatening)
  Sender: FDA-Public Use
  Company Number: 2006RR-03589

PATIENT
  Sex: Female
  Weight: 63 kg

DRUGS (3)
  1. CEFACLOR [Suspect]
     Indication: URINARY TRACT INFECTION
     Dosage: 250 MG ORAL
     Route: 048
     Dates: start: 20060425, end: 20060425
  2. RALOXIFENE [Concomitant]
  3. TRIMETHOPRIM [Concomitant]

REACTIONS (3)
  - DYSPHONIA [None]
  - LOSS OF CONSCIOUSNESS [None]
  - RASH PRURITIC [None]
